FAERS Safety Report 22535203 (Version 4)
Quarter: 2024Q3

REPORT INFORMATION
  Report Type: Report from Study
  Country: BR (occurrence: BR)
  Receive Date: 20230608
  Receipt Date: 20240809
  Transmission Date: 20241017
  Serious: Yes (Hospitalization, Disabling, Other)
  Sender: TAKEDA
  Company Number: BR-TAKEDA-BR201922808

PATIENT
  Sex: Male
  Weight: 36 kg

DRUGS (7)
  1. IDURSULFASE [Suspect]
     Active Substance: IDURSULFASE
     Indication: Mucopolysaccharidosis II
     Dosage: 9.5 MILLIGRAM, 1/WEEK
     Route: 042
  2. IDURSULFASE [Suspect]
     Active Substance: IDURSULFASE
     Dosage: 24 MILLIGRAM
     Route: 042
     Dates: start: 200712
  3. IDURSULFASE [Suspect]
     Active Substance: IDURSULFASE
     Dosage: 4 DOSAGE FORM, 1/WEEK
     Route: 042
     Dates: start: 2007
  4. IDURSULFASE [Suspect]
     Active Substance: IDURSULFASE
     Dosage: 4 DOSAGE FORM, 1/WEEK
     Route: 042
     Dates: start: 2009
  5. IDURSULFASE [Suspect]
     Active Substance: IDURSULFASE
     Dosage: UNK UNK, 1/WEEK
     Route: 042
  6. PHENOBARBITAL [Concomitant]
     Active Substance: PHENOBARBITAL
     Route: 065
  7. ALBUTEROL [Concomitant]
     Active Substance: ALBUTEROL
     Route: 065

REACTIONS (16)
  - Femur fracture [Unknown]
  - Femoral neck fracture [Unknown]
  - Walking disability [Unknown]
  - Seizure [Unknown]
  - Dysphagia [Unknown]
  - Weight decreased [Unknown]
  - Discomfort [Unknown]
  - Breath sounds abnormal [Unknown]
  - Tongue disorder [Unknown]
  - Hypertonia [Unknown]
  - Hand deformity [Unknown]
  - Viral infection [Unknown]
  - Malaise [Recovered/Resolved]
  - Product prescribing error [Unknown]
  - Pyrexia [Unknown]
  - Inappropriate schedule of product administration [Unknown]
